FAERS Safety Report 14448915 (Version 3)
Quarter: 2018Q1

REPORT INFORMATION
  Report Type: Spontaneous
  Country: US (occurrence: US)
  Receive Date: 20180126
  Receipt Date: 20180226
  Transmission Date: 20180509
  Serious: Yes (Other)
  Sender: FDA-Public Use
  Company Number: US-GE HEALTHCARE LIFE SCIENCES-2018CSU000331

PATIENT
  Age: 40 Year
  Sex: Female
  Weight: 77 kg

DRUGS (5)
  1. NAPROXEN SODIUM. [Concomitant]
     Active Substance: NAPROXEN SODIUM
     Indication: TOOTH FRACTURE
     Dosage: 220 MG, BID
     Route: 048
     Dates: start: 20170713
  2. MONODOX                            /00055701/ [Concomitant]
     Indication: TOOTH FRACTURE
     Dosage: 100 MG, UNK
     Route: 048
     Dates: start: 20171214
  3. PRILOSEC [Concomitant]
     Active Substance: OMEPRAZOLE MAGNESIUM
     Indication: GASTROOESOPHAGEAL REFLUX DISEASE
     Dosage: 40 MG, QD
     Route: 048
     Dates: start: 20171227
  4. ALBUTEROL HFA [Concomitant]
     Active Substance: ALBUTEROL SULFATE
     Dosage: 90 MCG, UNK
     Dates: start: 20151124
  5. OMNIPAQUE [Suspect]
     Active Substance: IOHEXOL
     Indication: ABDOMINAL PAIN
     Dosage: 96 ML, SINGLE
     Route: 042
     Dates: start: 20171229, end: 20171229

REACTIONS (2)
  - Pruritus [Recovering/Resolving]
  - Urticaria [Recovering/Resolving]

NARRATIVE: CASE EVENT DATE: 20171229
